FAERS Safety Report 6111196-8 (Version None)
Quarter: 2009Q1

REPORT INFORMATION
  Report Type: 
  Country: None (occurrence: None)
  Receive Date: 20090309
  Receipt Date: 20090309
  Transmission Date: 20090719
  Serious: Yes (Life-Threatening)
  Sender: FDA-Public Use
  Company Number: None

PATIENT
  Sex: Male
  Weight: 95 kg

DRUGS (16)
  1. SIROLIMUS [Suspect]
     Indication: IMMUNOSUPPRESSION
     Dosage: 1MG QD PO
     Route: 048
     Dates: start: 20060109, end: 20060407
  2. SIROLIMUS [Suspect]
     Indication: LUNG TRANSPLANT
     Dosage: 1MG QD PO
     Route: 048
     Dates: start: 20060109, end: 20060407
  3. PROGRAF [Concomitant]
  4. PREDNISONE [Concomitant]
  5. M.V.I. [Concomitant]
  6. MG OXIDE [Concomitant]
  7. VIT D [Concomitant]
  8. CALCIUM CARBONATE [Concomitant]
  9. MYCELAX [Concomitant]
  10. IRON SULFATETHIAMIN COMPOUND TAB [Concomitant]
  11. PROZAC [Concomitant]
  12. PHENERGEN [Concomitant]
  13. LASIX [Concomitant]
  14. LOPRESSOR [Concomitant]
  15. OMEPRAZOLE [Concomitant]
  16. BENADRYL [Concomitant]

REACTIONS (1)
  - DEEP VEIN THROMBOSIS [None]
